FAERS Safety Report 24200551 (Version 2)
Quarter: 2024Q3

REPORT INFORMATION
  Report Type: Spontaneous
  Country: US (occurrence: US)
  Receive Date: 20240812
  Receipt Date: 20240918
  Transmission Date: 20241017
  Serious: No
  Sender: PFIZER
  Company Number: US-PFIZER INC-202400233281

PATIENT
  Age: 73 Year
  Sex: Female

DRUGS (2)
  1. XELJANZ XR [Suspect]
     Active Substance: TOFACITINIB CITRATE
     Dosage: 11 MG, DAILY
     Route: 048
  2. XELJANZ XR [Suspect]
     Active Substance: TOFACITINIB CITRATE
     Dosage: 11 MG, DAILY
     Route: 048
     Dates: start: 2019

REACTIONS (5)
  - Arthralgia [Not Recovered/Not Resolved]
  - Neck pain [Unknown]
  - Pain in extremity [Unknown]
  - Muscle spasms [Not Recovered/Not Resolved]
  - Product dose omission in error [Unknown]
